FAERS Safety Report 25159429 (Version 2)
Quarter: 2025Q2

REPORT INFORMATION
  Report Type: Spontaneous
  Country: JP (occurrence: JP)
  Receive Date: 20250404
  Receipt Date: 20250411
  Transmission Date: 20250716
  Serious: No
  Sender: GALDERMA
  Company Number: JP-GALDERMA-JP2022019289

PATIENT

DRUGS (32)
  1. NEMOLIZUMAB [Suspect]
     Active Substance: NEMOLIZUMAB
     Indication: Dermatitis atopic
     Route: 058
     Dates: start: 20221121, end: 20221121
  2. NEMOLIZUMAB [Suspect]
     Active Substance: NEMOLIZUMAB
     Route: 058
     Dates: start: 20221219, end: 20221219
  3. NEMOLIZUMAB [Suspect]
     Active Substance: NEMOLIZUMAB
     Route: 058
     Dates: start: 20230116, end: 20230116
  4. NEMOLIZUMAB [Suspect]
     Active Substance: NEMOLIZUMAB
     Route: 058
     Dates: start: 20230228, end: 20230228
  5. NEMOLIZUMAB [Suspect]
     Active Substance: NEMOLIZUMAB
     Route: 058
     Dates: start: 20230329, end: 20230329
  6. NEMOLIZUMAB [Suspect]
     Active Substance: NEMOLIZUMAB
     Route: 058
     Dates: start: 20230426, end: 20230426
  7. NEMOLIZUMAB [Suspect]
     Active Substance: NEMOLIZUMAB
     Route: 058
     Dates: start: 20230524, end: 20230524
  8. NEMOLIZUMAB [Suspect]
     Active Substance: NEMOLIZUMAB
     Route: 058
     Dates: start: 20230621, end: 20230621
  9. NEMOLIZUMAB [Suspect]
     Active Substance: NEMOLIZUMAB
     Route: 058
     Dates: start: 20230719, end: 20230719
  10. NEMOLIZUMAB [Suspect]
     Active Substance: NEMOLIZUMAB
     Route: 058
     Dates: start: 20230823, end: 20230823
  11. NEMOLIZUMAB [Suspect]
     Active Substance: NEMOLIZUMAB
     Route: 058
     Dates: start: 20230929, end: 20230929
  12. NEMOLIZUMAB [Suspect]
     Active Substance: NEMOLIZUMAB
     Route: 058
     Dates: start: 20231025, end: 20231025
  13. NEMOLIZUMAB [Suspect]
     Active Substance: NEMOLIZUMAB
     Route: 058
  14. NEMOLIZUMAB [Suspect]
     Active Substance: NEMOLIZUMAB
     Route: 058
     Dates: start: 20250226, end: 20250226
  15. NEMOLIZUMAB [Suspect]
     Active Substance: NEMOLIZUMAB
     Route: 058
     Dates: start: 20250326, end: 20250326
  16. GLYCOSAMINOGLYCANS [Concomitant]
     Active Substance: GLYCOSAMINOGLYCANS
     Indication: Dermatitis atopic
     Route: 061
     Dates: start: 20180928
  17. DIFAMILAST [Concomitant]
     Active Substance: DIFAMILAST
     Indication: Dermatitis atopic
     Route: 061
     Dates: start: 20221121
  18. RINDERON VG [Concomitant]
     Active Substance: BETAMETHASONE VALERATE\GENTAMICIN SULFATE
     Indication: Dermatitis atopic
     Route: 061
  19. BILASTINE [Concomitant]
     Active Substance: BILASTINE
     Indication: Pruritus
     Route: 048
     Dates: start: 20191008
  20. BILASTINE [Concomitant]
     Active Substance: BILASTINE
     Route: 048
     Dates: start: 20221121
  21. EURAX H [Concomitant]
     Indication: Dermatitis atopic
     Route: 061
     Dates: start: 20221121
  22. COVID-19 VACCINE [Concomitant]
     Indication: Immunisation
     Route: 065
     Dates: start: 20221205
  23. CLOBETASOL [Concomitant]
     Active Substance: CLOBETASOL
     Indication: Dermatitis atopic
     Route: 061
     Dates: start: 20180831
  24. DELGOCITINIB [Concomitant]
     Active Substance: DELGOCITINIB
     Indication: Dermatitis atopic
     Route: 061
     Dates: start: 20200721
  25. NADIFLOXACIN [Concomitant]
     Active Substance: NADIFLOXACIN
     Indication: Folliculitis
     Route: 061
  26. MOIZERTO [Concomitant]
     Indication: Dermatitis atopic
     Route: 061
     Dates: start: 20220624
  27. ATARAX-P [HYDROXYZINE HYDROCHLORIDE] [Concomitant]
     Indication: Pruritus
     Route: 048
     Dates: start: 20180831
  28. HERBALS [Concomitant]
     Active Substance: HERBALS
     Indication: Product used for unknown indication
     Route: 048
  29. ALLELOCK [Concomitant]
     Active Substance: OLOPATADINE HYDROCHLORIDE
     Indication: Product used for unknown indication
     Route: 048
  30. Jumihaidokuto [Concomitant]
     Indication: Product used for unknown indication
     Route: 048
  31. VTAMA [Concomitant]
     Active Substance: TAPINAROF
     Indication: Product used for unknown indication
     Route: 061
  32. BETAMETHASONE DIPROPIONATE [Concomitant]
     Active Substance: BETAMETHASONE DIPROPIONATE
     Indication: Product used for unknown indication
     Route: 061

REACTIONS (6)
  - Pruritus [Recovering/Resolving]
  - Erythema [Recovered/Resolved]
  - Chills [Unknown]
  - Rhinorrhoea [Unknown]
  - Eczema nummular [Not Recovered/Not Resolved]
  - Blister [Unknown]

NARRATIVE: CASE EVENT DATE: 20221206
